FAERS Safety Report 21054961 (Version 1)
Quarter: 2022Q3

REPORT INFORMATION
  Report Type: Spontaneous
  Country: US (occurrence: US)
  Receive Date: 20220707
  Receipt Date: 20220707
  Transmission Date: 20221027
  Serious: No
  Sender: FDA-Public Use
  Company Number: US-AMGEN-USASP2022112476

PATIENT

DRUGS (1)
  1. BEVACIZUMAB [Suspect]
     Active Substance: BEVACIZUMAB
     Indication: Product used for unknown indication
     Route: 065

REACTIONS (8)
  - Decreased interest [Unknown]
  - Adverse event [Unknown]
  - Vulvovaginal dryness [Unknown]
  - Vulvovaginal pain [Unknown]
  - Sexual dysfunction [Unknown]
  - Dyspareunia [Unknown]
  - Orgasm abnormal [Unknown]
  - Anxiety [Unknown]
